FAERS Safety Report 8185624-0 (Version None)
Quarter: 2012Q1

REPORT INFORMATION
  Report Type: 
  Country: None (occurrence: None)
  Receive Date: 20120305
  Receipt Date: 20120229
  Transmission Date: 20120608
  Serious: Yes (Hospitalization, Other)
  Sender: FDA-Public Use
  Company Number: US-PFIZER INC-2012042985

PATIENT
  Sex: Female

DRUGS (3)
  1. PROTONIX [Suspect]
     Dosage: UNK
  2. NEXIUM [Suspect]
     Dosage: UNK
  3. CELEBREX [Suspect]
     Dosage: UNK

REACTIONS (4)
  - BLINDNESS [None]
  - NEPHROLITHIASIS [None]
  - NAUSEA [None]
  - VOMITING [None]
